FAERS Safety Report 6833247-5 (Version None)
Quarter: 2010Q3

REPORT INFORMATION
  Report Type: 
  Country: None (occurrence: None)
  Receive Date: 20100712
  Receipt Date: 20100603
  Transmission Date: 20110219
  Serious: No
  Sender: FDA-Public Use
  Company Number: US-BIOGENIDEC-2010BI018973

PATIENT
  Age: 52 Year
  Sex: Female

DRUGS (1)
  1. TYSABRI [Suspect]
     Indication: MULTIPLE SCLEROSIS
     Route: 042
     Dates: start: 20091101

REACTIONS (6)
  - BACK PAIN [None]
  - BALANCE DISORDER [None]
  - COUGH [None]
  - PELVIC PAIN [None]
  - PULMONARY CONGESTION [None]
  - SKIN LESION [None]
